FAERS Safety Report 16755084 (Version 1)
Quarter: 2019Q3

REPORT INFORMATION
  Report Type: Spontaneous
  Country: CA (occurrence: CA)
  Receive Date: 20190829
  Receipt Date: 20190829
  Transmission Date: 20191005
  Serious: Yes (Other)
  Sender: FDA-Public Use
  Company Number: CA-PFIZER INC-2019371020

PATIENT
  Age: 45 Year
  Sex: Female

DRUGS (1)
  1. DETROL LA [Suspect]
     Active Substance: TOLTERODINE TARTRATE
     Indication: HYPERTONIC BLADDER
     Dosage: 1 DF, 1X/DAY
     Route: 048

REACTIONS (3)
  - Constipation [Recovered/Resolved]
  - Abdominal rigidity [Recovered/Resolved]
  - Dry mouth [Recovered/Resolved]
